FAERS Safety Report 7560735-9 (Version None)
Quarter: 2011Q2

REPORT INFORMATION
  Report Type: 
  Country: None (occurrence: None)
  Receive Date: 20110525
  Receipt Date: 20110311
  Transmission Date: 20111010
  Serious: No
  Sender: FDA-Public Use
  Company Number: 325000

PATIENT
  Age: 65 Year
  Sex: Female
  Weight: 63.9 kg

DRUGS (2)
  1. VICTOZA [Suspect]
     Indication: TYPE 2 DIABETES MELLITUS
     Dosage: 1.2 MG, QD, SUBCUTANEOUS
     Route: 058
  2. ACTOS [Concomitant]

REACTIONS (3)
  - WEIGHT INCREASED [None]
  - DECREASED APPETITE [None]
  - DIZZINESS [None]
